FAERS Safety Report 12089735 (Version 2)
Quarter: 2016Q3

REPORT INFORMATION
  Report Type: Spontaneous
  Country: US (occurrence: US)
  Receive Date: 20160218
  Receipt Date: 20160708
  Transmission Date: 20161109
  Serious: No
  Sender: FDA-Public Use
  Company Number: US-CELGENEUS-USA-2016023233

PATIENT
  Age: 76 Year
  Sex: Female

DRUGS (4)
  1. OTEZLA [Suspect]
     Active Substance: APREMILAST
     Route: 048
     Dates: start: 20151123, end: 20160208
  2. LOTREL [Concomitant]
     Active Substance: AMLODIPINE BESYLATE\BENAZEPRIL HYDROCHLORIDE
     Indication: BLOOD PRESSURE MEASUREMENT
     Route: 065
  3. OTEZLA [Suspect]
     Active Substance: APREMILAST
     Indication: PSORIASIS
     Route: 048
     Dates: start: 20151111
  4. DEXILANT [Concomitant]
     Active Substance: DEXLANSOPRAZOLE
     Indication: REFLEXES ABNORMAL
     Route: 065

REACTIONS (1)
  - Abdominal discomfort [Recovered/Resolved]

NARRATIVE: CASE EVENT DATE: 20151123
